FAERS Safety Report 16092380 (Version 2)
Quarter: 2019Q2

REPORT INFORMATION
  Report Type: Spontaneous
  Country: US (occurrence: US)
  Receive Date: 20190319
  Receipt Date: 20190430
  Transmission Date: 20190711
  Serious: Yes (Other)
  Sender: FDA-Public Use
  Company Number: PHEH2019US012086

PATIENT
  Age: 79 Year
  Sex: Male
  Weight: 92.7 kg

DRUGS (1)
  1. ENTRESTO [Suspect]
     Active Substance: SACUBITRIL\VALSARTAN
     Indication: CARDIAC FAILURE
     Dosage: 50 MG, BID
     Route: 048
     Dates: start: 20190308, end: 20190315

REACTIONS (6)
  - Disorientation [Unknown]
  - Mental status changes [Unknown]
  - Asthenia [Recovered/Resolved]
  - Cognitive disorder [Unknown]
  - Memory impairment [Unknown]
  - Confusional state [Recovered/Resolved]

NARRATIVE: CASE EVENT DATE: 20190314
